FAERS Safety Report 11897619 (Version 1)
Quarter: 2016Q1

REPORT INFORMATION
  Report Type: Report from Study
  Country: JP (occurrence: JP)
  Receive Date: 20160108
  Receipt Date: 20160108
  Transmission Date: 20160526
  Serious: Yes (Life-Threatening, Other)
  Sender: FDA-Public Use
  Company Number: JP-AMGEN-JPNCT2013094428

PATIENT
  Age: 64 Year
  Sex: Male
  Weight: 49 kg

DRUGS (21)
  1. RISUMIC [Concomitant]
     Active Substance: AMEZINIUM METILSULFATE
     Indication: HYPOTENSION
     Dosage: 1 DF, BID
     Route: 048
     Dates: start: 20120602, end: 20120914
  2. BAKTAR [Concomitant]
     Active Substance: SULFAMETHOXAZOLE\TRIMETHOPRIM
     Indication: PNEUMONIA
     Dosage: 1 G, QD
     Route: 048
     Dates: start: 20120601, end: 20121005
  3. PRIMPERAN [Concomitant]
     Active Substance: METOCLOPRAMIDE HYDROCHLORIDE
     Indication: ABDOMINAL DISTENSION
     Dosage: 4 ML, QD
     Route: 048
     Dates: start: 20120602, end: 20121030
  4. BIOFERMIN R [Concomitant]
     Active Substance: BACILLUS SUBTILIS\LACTOBACILLUS ACIDOPHILUS\STREPTOCOCCUS FAECAIS
     Indication: DYSBACTERIOSIS
     Dosage: 1 G, TID
     Route: 048
     Dates: start: 20120602, end: 20121130
  5. MUCOSOLVAN [Concomitant]
     Active Substance: AMBROXOL HYDROCHLORIDE
     Indication: BRONCHITIS CHRONIC
     Dosage: 1 DF, TID
     Route: 048
     Dates: start: 20120602, end: 20121130
  6. AMINOLEBAN EN [Concomitant]
     Active Substance: UNSPECIFIED INGREDIENT
     Indication: HEPATIC FUNCTION ABNORMAL
     Dosage: 2 DF, QD
     Route: 048
     Dates: start: 20120710, end: 20121109
  7. PREDNISOLONE. [Concomitant]
     Active Substance: PREDNISOLONE
     Indication: IMMUNE THROMBOCYTOPENIC PURPURA
     Dosage: 2 MG, QD
     Route: 048
     Dates: start: 20120602, end: 20120703
  8. GASCON [Concomitant]
     Active Substance: DIMETHICONE
     Indication: ABDOMINAL DISTENSION
     Dosage: 1 DF, TID
     Route: 048
     Dates: start: 20120602, end: 20121130
  9. LAXOBERON [Concomitant]
     Active Substance: SODIUM PICOSULFATE
     Indication: CONSTIPATION
     Dosage: 3 DF, QD
     Route: 048
     Dates: start: 20120606, end: 20121117
  10. SOLU-MEDROL [Concomitant]
     Active Substance: METHYLPREDNISOLONE SODIUM SUCCINATE
     Indication: IMMUNE THROMBOCYTOPENIC PURPURA
     Dosage: 1000 MG, QD
     Route: 041
     Dates: start: 20120523, end: 20120524
  11. ELENTAL [Concomitant]
     Active Substance: AMINO ACIDS\CARBOHYDRATES\MINERALS\SOYBEAN OIL\VITAMINS
     Indication: MALNUTRITION
     Dosage: 80 G, BID
     Route: 048
     Dates: start: 20120724, end: 20121130
  12. NEOPHAGEN C [Concomitant]
     Indication: HEPATIC FUNCTION ABNORMAL
     Dosage: 1 DF, TID
     Route: 048
     Dates: start: 20120822, end: 20120831
  13. MEXITIL [Concomitant]
     Active Substance: MEXILETINE HYDROCHLORIDE
     Indication: VENTRICULAR ARRHYTHMIA
     Dosage: 5 DF, TID
     Route: 048
     Dates: start: 20120927, end: 20121130
  14. PREDONINE [Concomitant]
     Active Substance: PREDNISOLONE\PREDNISOLONE ACETATE\PREDNISOLONE SODIUM SUCCINATE
     Indication: IMMUNE THROMBOCYTOPENIC PURPURA
     Dosage: 5 MG, QD
     Route: 048
     Dates: start: 20120320, end: 20120625
  15. SELBEX [Concomitant]
     Active Substance: TEPRENONE
     Indication: GASTRITIS
     Dosage: 1 DF, TID
     Route: 048
     Dates: start: 20120602, end: 20120706
  16. MUCODYNE [Concomitant]
     Active Substance: CARBOCYSTEINE
     Indication: BRONCHITIS CHRONIC
     Dosage: 2 DF, TID
     Route: 048
     Dates: start: 20120602, end: 20121130
  17. ROMIPLOSTIM [Suspect]
     Active Substance: ROMIPLOSTIM
     Indication: IMMUNE THROMBOCYTOPENIC PURPURA
     Dosage: 1 MUG/KG, QWK
     Route: 058
     Dates: start: 20120601, end: 20130210
  18. KAMAG G [Concomitant]
     Active Substance: MAGNESIUM OXIDE
     Indication: CONSTIPATION
     Dosage: 1 DF, TID
     Route: 048
     Dates: start: 20120602, end: 20120919
  19. LASIX [Concomitant]
     Active Substance: FUROSEMIDE
     Indication: CARDIAC FAILURE
     Dosage: 1 DF, QD
     Route: 048
     Dates: start: 20120721, end: 20120724
  20. VOLTAREN [Concomitant]
     Active Substance: DICLOFENAC SODIUM
     Dosage: 25 MG, PRN
     Route: 054
     Dates: start: 20120523
  21. SEISHOKU [Concomitant]
     Active Substance: SODIUM CHLORIDE
     Dosage: 100 ML, QD
     Route: 041
     Dates: start: 20120523, end: 20120524

REACTIONS (18)
  - Fungal infection [Recovering/Resolving]
  - Cardiac failure [Recovering/Resolving]
  - Gastric haemorrhage [Unknown]
  - Diarrhoea [Unknown]
  - Device related infection [Recovering/Resolving]
  - Hypokalaemia [Recovering/Resolving]
  - Immunoglobulins decreased [Recovering/Resolving]
  - Pneumonia [Recovering/Resolving]
  - Ventricular arrhythmia [Recovering/Resolving]
  - Dermatitis contact [Unknown]
  - Nephrotic syndrome [Unknown]
  - Pneumonia [Recovering/Resolving]
  - Pneumonia [Recovering/Resolving]
  - Tinea cruris [Unknown]
  - Pneumonia [Recovering/Resolving]
  - Pneumonia [Recovering/Resolving]
  - Hepatic enzyme increased [Recovering/Resolving]
  - Pneumonia [Recovering/Resolving]

NARRATIVE: CASE EVENT DATE: 20120608
